FAERS Safety Report 23614433 (Version 1)
Quarter: 2024Q1

REPORT INFORMATION
  Report Type: Spontaneous
  Country: GB (occurrence: GB)
  Receive Date: 20240311
  Receipt Date: 20240311
  Transmission Date: 20240410
  Serious: Yes (Other)
  Sender: FDA-Public Use
  Company Number: None

PATIENT
  Age: 38 Year
  Sex: Female
  Weight: 106 kg

DRUGS (11)
  1. ALBUTEROL [Suspect]
     Active Substance: ALBUTEROL
     Route: 065
  2. BECLOMETHASONE\FORMOTEROL [Concomitant]
     Active Substance: BECLOMETHASONE\FORMOTEROL
     Dates: start: 20231115
  3. BUTYLSCOPOLAMINE BROMIDE [Concomitant]
     Active Substance: BUTYLSCOPOLAMINE BROMIDE
     Dosage: DURATION: 7 DAYS
     Dates: start: 20231208, end: 20231215
  4. LYMECYCLINE [Concomitant]
     Active Substance: LYMECYCLINE
     Dates: start: 20240104
  5. CITALOPRAM [Concomitant]
     Active Substance: CITALOPRAM HYDROBROMIDE
     Indication: Anxiety
     Dosage: 1 A DAY (10+20=30) FOR ANXIETY
     Dates: start: 20231115
  6. DESOGESTREL [Concomitant]
     Active Substance: DESOGESTREL
     Dates: start: 20231218
  7. ALBUTEROL [Concomitant]
     Active Substance: ALBUTEROL
     Dosage: TIME INTERVAL: AS NECESSARY
     Dates: start: 20231115
  8. DIORALYTE [Concomitant]
     Active Substance: CITRIC ACID MONOHYDRATE\DEXTROSE\POTASSIUM CATION\SODIUM CHLORIDE
     Dosage: TIME INTERVAL: AS NECESSARY: DURATION: 1 DAY
     Dates: start: 20231211, end: 20231212
  9. COCODAMOL [Concomitant]
     Active Substance: ACETAMINOPHEN\CODEINE PHOSPHATE
     Dosage: TAKE 1 OR 2 4 TIMES/DAY
     Dates: start: 20231115
  10. CHLORHEXIDINE GLUCONATE [Concomitant]
     Active Substance: CHLORHEXIDINE GLUCONATE
     Dosage: USE AS DIRECTED, DURATION: 28 DAYS
     Dates: start: 20240104, end: 20240201
  11. METRONIDAZOLE [Concomitant]
     Active Substance: METRONIDAZOLE
     Dosage: TIME INTERVAL: 0.33333333 DAYS: (AVOID ALCOHOL DURING TREA..., DURATION: 5 DAYS
     Dates: start: 20240109, end: 20240114

REACTIONS (2)
  - Chest discomfort [Unknown]
  - Tremor [Recovered/Resolved]
